FAERS Safety Report 14342621 (Version 2)
Quarter: 2018Q1

REPORT INFORMATION
  Report Type: Report from Study
  Country: CO (occurrence: CO)
  Receive Date: 20180102
  Receipt Date: 20180123
  Transmission Date: 20180509
  Serious: Yes (Hospitalization)
  Sender: FDA-Public Use
  Company Number: CO-ACTELION-A-CH2017-164753

PATIENT
  Age: 49 Year
  Sex: Female
  Weight: 42 kg

DRUGS (6)
  1. OPSUMIT [Suspect]
     Active Substance: MACITENTAN
     Dosage: 10 MG, QD
     Route: 048
  2. OPSUMIT [Suspect]
     Active Substance: MACITENTAN
     Indication: PULMONARY ARTERIAL HYPERTENSION
     Dosage: 10 MG, QD
     Route: 048
     Dates: start: 20171124, end: 20171207
  3. ACETAMINOPHEN. [Concomitant]
     Active Substance: ACETAMINOPHEN
     Indication: PAIN
     Dosage: UNK
     Route: 048
  4. KETOTIFEN [Concomitant]
     Active Substance: KETOTIFEN
     Indication: COUGH
     Dosage: UNK
     Route: 048
  5. IPRATROPIUM BROMIDE. [Concomitant]
     Active Substance: IPRATROPIUM BROMIDE
     Indication: PULMONARY ARTERIAL HYPERTENSION
     Dosage: 2 PUFF, PRN
     Route: 055
  6. ALBUTEROL. [Concomitant]
     Active Substance: ALBUTEROL
     Indication: PULMONARY ARTERIAL HYPERTENSION
     Dosage: 2 PUFF, PRN
     Route: 055

REACTIONS (9)
  - Pyrexia [Recovered/Resolved]
  - Dyspnoea [Recovered/Resolved]
  - Lung infiltration [Recovered/Resolved]
  - Productive cough [Recovered/Resolved]
  - Sputum purulent [Recovered/Resolved]
  - Asthenia [Recovered/Resolved]
  - Pneumonia [Recovered/Resolved]
  - Pulmonary congestion [Recovered/Resolved]
  - Chills [Recovered/Resolved]

NARRATIVE: CASE EVENT DATE: 20171208
